FAERS Safety Report 8579812-9 (Version None)
Quarter: 2012Q3

REPORT INFORMATION
  Report Type: 
  Country: None (occurrence: None)
  Receive Date: 20120808
  Receipt Date: 20120730
  Transmission Date: 20120928
  Serious: Yes (Hospitalization)
  Sender: FDA-Public Use
  Company Number: IT-EISAI INC-E7389-02773-SPO-IT

PATIENT
  Sex: Female

DRUGS (2)
  1. HALAVEN [Suspect]
     Route: 041
     Dates: start: 20120518
  2. HALAVEN [Suspect]
     Route: 041
     Dates: start: 20120627

REACTIONS (1)
  - MYOCARDIAL ISCHAEMIA [None]
